FAERS Safety Report 10063472 (Version 2)
Quarter: 2014Q2

REPORT INFORMATION
  Report Type: Spontaneous
  Country: US (occurrence: US)
  Receive Date: 20140407
  Receipt Date: 20140425
  Transmission Date: 20141212
  Serious: Yes (Death)
  Sender: FDA-Public Use
  Company Number: US-ASTRAZENECA-2014SE23548

PATIENT
  Age: 103 Day
  Sex: Male

DRUGS (2)
  1. SYNAGIS [Suspect]
     Route: 030
     Dates: start: 20140105
  2. SEVERAL VACCINATIONS [Concomitant]

REACTIONS (2)
  - Choking [Fatal]
  - Aspiration [Fatal]
